FAERS Safety Report 15396132 (Version 1)
Quarter: 2018Q3

REPORT INFORMATION
  Report Type: Spontaneous
  Country: FI (occurrence: FI)
  Receive Date: 20180918
  Receipt Date: 20180918
  Transmission Date: 20181010
  Serious: Yes (Other)
  Sender: FDA-Public Use
  Company Number: PHHY2018FI094502

PATIENT
  Age: 31 Year
  Sex: Female

DRUGS (1)
  1. COSENTYX [Suspect]
     Active Substance: SECUKINUMAB
     Indication: PSORIASIS
     Route: 058

REACTIONS (7)
  - Granulomatosis with polyangiitis [Not Recovered/Not Resolved]
  - Otitis externa [Not Recovered/Not Resolved]
  - Sinusitis [Not Recovered/Not Resolved]
  - Polyarteritis nodosa [Not Recovered/Not Resolved]
  - Skin mass [Not Recovered/Not Resolved]
  - Skin ulcer [Not Recovered/Not Resolved]
  - Scar [Not Recovered/Not Resolved]

NARRATIVE: CASE EVENT DATE: 201802
